FAERS Safety Report 21323750 (Version 2)
Quarter: 2023Q1

REPORT INFORMATION
  Report Type: Report from Study
  Country: DE (occurrence: DE)
  Receive Date: 20220912
  Receipt Date: 20230113
  Transmission Date: 20230418
  Serious: Yes (Death, Hospitalization)
  Sender: FDA-Public Use
  Company Number: DE-009507513-2208DEU011149

PATIENT
  Sex: Male
  Weight: 56 kg

DRUGS (11)
  1. PEMETREXED [Suspect]
     Active Substance: PEMETREXED
     Indication: Non-small cell lung cancer
     Dosage: 805-895 MG
     Dates: start: 20220725, end: 20220725
  2. CARBOPLATIN [Suspect]
     Active Substance: CARBOPLATIN
     Indication: Non-small cell lung cancer
     Dosage: 478.65 -413 MG
     Dates: start: 20220725, end: 20220725
  3. PEMBROLIZUMAB [Suspect]
     Active Substance: PEMBROLIZUMAB
     Indication: Non-small cell lung cancer
     Dosage: 200 MILLIGRAM
     Dates: start: 20220725, end: 20220725
  4. METAMIZOL [Concomitant]
     Active Substance: METAMIZOLE SODIUM
     Dosage: 750 MG, 1X/DAY
     Route: 048
     Dates: end: 20220806
  5. BISOPROLOL [Concomitant]
     Active Substance: BISOPROLOL
     Dosage: 10 MG, 1X/DAY
     Route: 048
     Dates: end: 20220806
  6. FOLIC ACID [Concomitant]
     Active Substance: FOLIC ACID
     Dosage: 4 MG, 1X/DAY
     Route: 048
     Dates: start: 20220714, end: 20220806
  7. LEVOTHYROXINE [Concomitant]
     Active Substance: LEVOTHYROXINE
     Dosage: 75 UG, 1X/DAY
     Route: 048
     Dates: end: 20220806
  8. VITAMIN B12 [Concomitant]
     Active Substance: CYANOCOBALAMIN
     Dosage: UNK UNK, 4 X PER YEAR
     Route: 058
     Dates: start: 20220714, end: 20220806
  9. ASPIRIN [Concomitant]
     Active Substance: ASPIRIN
     Dosage: 100 MG, 1X/DAY
     Route: 048
     Dates: end: 20220806
  10. RAMIPRIL-RATIOPHARM [Concomitant]
     Dosage: 5 MG, 1X/DAY
     Route: 048
     Dates: end: 20220806
  11. AREDIA [Concomitant]
     Active Substance: PAMIDRONATE DISODIUM
     Dosage: 90 MG, ONCE MONTHLY
     Route: 048
     Dates: start: 20220615, end: 20220806

REACTIONS (3)
  - Shock haemorrhagic [Fatal]
  - Thrombocytopenia [Fatal]
  - Febrile neutropenia [Fatal]

NARRATIVE: CASE EVENT DATE: 20220806
